FAERS Safety Report 20111296 (Version 1)
Quarter: 2021Q4

REPORT INFORMATION
  Report Type: Spontaneous
  Country: IT (occurrence: IT)
  Receive Date: 20211125
  Receipt Date: 20211125
  Transmission Date: 20220304
  Serious: Yes (Hospitalization, Other)
  Sender: FDA-Public Use
  Company Number: IT-ABBVIE-21K-083-4173493-00

PATIENT
  Age: 59 Year
  Sex: Female

DRUGS (2)
  1. VALPROATE SODIUM [Suspect]
     Active Substance: VALPROATE SODIUM
     Indication: Drug abuse
     Route: 048
     Dates: start: 20191203, end: 20191203
  2. DELORAZEPAM [Suspect]
     Active Substance: DELORAZEPAM
     Indication: Drug abuse
     Dosage: 50 GTT DROPS
     Route: 048
     Dates: start: 20191203, end: 20191203

REACTIONS (4)
  - Speech disorder [Unknown]
  - Somnolence [Unknown]
  - Drug abuse [Unknown]
  - Intentional product misuse [Unknown]

NARRATIVE: CASE EVENT DATE: 20191203
